FAERS Safety Report 5464457-X (Version None)
Quarter: 2007Q3

REPORT INFORMATION
  Report Type: 
  Country: None (occurrence: None)
  Receive Date: 20070921
  Receipt Date: 20070913
  Transmission Date: 20080115
  Serious: Yes (Hospitalization)
  Sender: FDA-Public Use
  Company Number: CH-AVENTIS-200714353EU

PATIENT
  Age: 76 Year
  Sex: Female

DRUGS (7)
  1. LASIX [Suspect]
     Route: 048
     Dates: end: 20070809
  2. MIANSERIN [Suspect]
     Route: 048
     Dates: start: 20050101, end: 20070813
  3. CORDARONE [Suspect]
     Route: 048
  4. TORASEM [Suspect]
     Route: 048
     Dates: end: 20070809
  5. BELOC                              /00376902/ [Concomitant]
     Route: 048
  6. ALDACTONE [Concomitant]
     Route: 048
  7. SOTALOL HYDROCHLORIDE [Concomitant]
     Route: 048

REACTIONS (4)
  - DRUG INTERACTION [None]
  - DYSPNOEA [None]
  - HYPONATRAEMIA [None]
  - INAPPROPRIATE ANTIDIURETIC HORMONE SECRETION [None]
